FAERS Safety Report 17602976 (Version 1)
Quarter: 2020Q1

REPORT INFORMATION
  Report Type: Spontaneous
  Country: US (occurrence: US)
  Receive Date: 20200331
  Receipt Date: 20200331
  Transmission Date: 20200409
  Serious: No
  Sender: FDA-Public Use
  Company Number: US-SHIRE-US202007398

PATIENT
  Sex: Male
  Weight: 89.48 kg

DRUGS (1)
  1. GATTEX [Suspect]
     Active Substance: TEDUGLUTIDE\WATER
     Indication: SHORT-BOWEL SYNDROME
     Dosage: 0.22 MILLILITER, 1X/DAY:QD
     Route: 050

REACTIONS (2)
  - Blood creatinine increased [Unknown]
  - Device issue [Unknown]
